FAERS Safety Report 25168107 (Version 2)
Quarter: 2025Q2

REPORT INFORMATION
  Report Type: Report from Study
  Country: US (occurrence: US)
  Receive Date: 20250407
  Receipt Date: 20250421
  Transmission Date: 20250716
  Serious: Yes (Hospitalization, Other)
  Sender: BAYER HEALTHCARE PHARMACEUTICALS INC.
  Company Number: US-BAYER-2025A043240

PATIENT
  Age: 66 Year
  Sex: Male

DRUGS (2)
  1. NUBEQA [Suspect]
     Active Substance: DAROLUTAMIDE
     Dosage: 600 MG, BID(MORNING AND  AT NIGHT)
     Dates: start: 20250305
  2. NUBEQA [Suspect]
     Active Substance: DAROLUTAMIDE
     Dosage: 600 MG, BID
     Route: 048
     Dates: start: 20250321, end: 20250327

REACTIONS (6)
  - Seizure [Unknown]
  - Seizure [Not Recovered/Not Resolved]
  - Gait inability [None]
  - Fatigue [None]
  - Hyperhidrosis [None]
  - Feeling hot [None]

NARRATIVE: CASE EVENT DATE: 20250315
